FAERS Safety Report 9244524 (Version 1)
Quarter: 2013Q1

REPORT INFORMATION
  Report Type: Spontaneous
  Country: US (occurrence: None)
  Receive Date: 20121123
  Receipt Date: 20121123
  Transmission Date: 20140127
  Serious: No
  Sender: FDA-Public Use
  Company Number: 361895

PATIENT
  Age: 39 Year
  Sex: Male

DRUGS (10)
  1. VICTOZA [Suspect]
     Indication: TYPE 2 DIABETES MELLITUS
     Route: 058
     Dates: start: 20121009
  2. NOVOTWIST 5 MM (32G) (NOVOTWIST) [Concomitant]
  3. AMARYL (GLIMEPIRIDE) [Concomitant]
  4. DEPAKOTE (VALPROATE SEMISODIUM) [Concomitant]
  5. JANUMET (METFORMIN HYDROCHLORIDE, SITAGLIPTIN PHOSPHATE MONOHYDRATE) [Concomitant]
  6. KLONOPIN (CLONAZEPAM) (TABLETS) [Concomitant]
  7. METFORMIN (METFORMIN) [Concomitant]
  8. PREVACID (LANSOPRAZOLE) [Concomitant]
  9. TIZANIDINE (TIZANIDINE) [Concomitant]
  10. ZOCOR (SIMVASTATIN) [Concomitant]

REACTIONS (1)
  - Blood glucose increased [None]
